FAERS Safety Report 4282855-7 (Version None)
Quarter: 2004Q1

REPORT INFORMATION
  Report Type: 
  Country: None (occurrence: None)
  Receive Date: 20040130
  Receipt Date: 20030708
  Transmission Date: 20041129
  Serious: No
  Sender: FDA-Public Use
  Company Number: US-BRISTOL-MYERS SQUIBB COMPANY-12321071

PATIENT

DRUGS (2)
  1. SERZONE [Suspect]
     Indication: DEPRESSION
     Dosage: TAKING MEDICATION FOR THE ^PAST TWO WEEKS^
     Route: 048
     Dates: start: 20030601
  2. VALIUM [Concomitant]

REACTIONS (1)
  - CHROMATURIA [None]
